FAERS Safety Report 21445293 (Version 1)
Quarter: 2022Q4

REPORT INFORMATION
  Report Type: Spontaneous
  Country: US (occurrence: None)
  Receive Date: 20221011
  Receipt Date: 20221011
  Transmission Date: 20230113
  Serious: Yes (Other)
  Sender: FDA-Public Use
  Company Number: None

PATIENT
  Age: 53 Year
  Sex: Female
  Weight: 79.4 kg

DRUGS (1)
  1. DOCETAXEL [Suspect]
     Active Substance: DOCETAXEL
     Indication: Breast cancer
     Dosage: FREQUENCY : EVERY THREE WEEKS;?
     Route: 042
     Dates: start: 20220627, end: 20220912

REACTIONS (13)
  - Erythema [None]
  - Feeling hot [None]
  - Pruritus [None]
  - Nausea [None]
  - Malaise [None]
  - Myalgia [None]
  - Mouth ulceration [None]
  - Vaginal ulceration [None]
  - Perineal ulceration [None]
  - Infusion related reaction [None]
  - Infusion site erythema [None]
  - Infusion site irritation [None]
  - Dyspepsia [None]

NARRATIVE: CASE EVENT DATE: 20220912
